FAERS Safety Report 18303678 (Version 7)
Quarter: 2021Q1

REPORT INFORMATION
  Report Type: Report from Study
  Country: US (occurrence: US)
  Receive Date: 20200923
  Receipt Date: 20210330
  Transmission Date: 20210419
  Serious: Yes (Other)
  Sender: FDA-Public Use
  Company Number: US-TAIHO ONCOLOGY  INC-EU-2020-03030

PATIENT
  Age: 56 Year
  Sex: Male

DRUGS (20)
  1. FENTANYL. [Concomitant]
     Active Substance: FENTANYL
  2. QUERCETIN [Concomitant]
     Active Substance: QUERCETIN
  3. VITAMIN C [Concomitant]
     Active Substance: ASCORBIC ACID
  4. AMITRYPLIN [Concomitant]
  5. AMLODIPINE [Concomitant]
     Active Substance: AMLODIPINE BESYLATE
  6. VITAMIN D3 [Concomitant]
     Active Substance: CHOLECALCIFEROL
  7. FEROSUL [Concomitant]
     Active Substance: FERROUS SULFATE
  8. IRON [Concomitant]
     Active Substance: IRON
  9. ZINC. [Concomitant]
     Active Substance: ZINC
  10. FENOFIBRATE. [Concomitant]
     Active Substance: FENOFIBRATE
  11. OXYCODONE [Concomitant]
     Active Substance: OXYCODONE
  12. LONSURF [Suspect]
     Active Substance: TIPIRACIL HYDROCHLORIDE\TRIFLURIDINE
     Indication: CARCINOID TUMOUR
     Dosage: CURRENT CYCLE UNKNOWN
     Route: 048
     Dates: start: 20200429
  13. NAPROXEN. [Concomitant]
     Active Substance: NAPROXEN
  14. SINGULAIR [Concomitant]
     Active Substance: MONTELUKAST SODIUM
  15. METFORMIN [Concomitant]
     Active Substance: METFORMIN HYDROCHLORIDE
  16. LONSURF [Suspect]
     Active Substance: TIPIRACIL HYDROCHLORIDE\TRIFLURIDINE
     Indication: COLON CANCER
     Dosage: CURRENT CYCLE UNKNOWN
     Route: 048
  17. AMBIEN [Concomitant]
     Active Substance: ZOLPIDEM TARTRATE
  18. CYMBALTA [Concomitant]
     Active Substance: DULOXETINE HYDROCHLORIDE
  19. GABAPENTIN. [Concomitant]
     Active Substance: GABAPENTIN
  20. LOSARTAN POTASSIUM. [Concomitant]
     Active Substance: LOSARTAN POTASSIUM

REACTIONS (9)
  - Haematochezia [Unknown]
  - Dyspnoea [Recovered/Resolved]
  - Fatigue [Recovered/Resolved]
  - Neuropathy peripheral [Not Recovered/Not Resolved]
  - Feeling abnormal [Not Recovered/Not Resolved]
  - Diarrhoea [Not Recovered/Not Resolved]
  - Dizziness [Not Recovered/Not Resolved]
  - Stomatitis [Recovered/Resolved]
  - Nausea [Not Recovered/Not Resolved]

NARRATIVE: CASE EVENT DATE: 2020
